FAERS Safety Report 18067403 (Version 1)
Quarter: 2020Q3

REPORT INFORMATION
  Report Type: Spontaneous
  Country: US (occurrence: CA)
  Receive Date: 20200724
  Receipt Date: 20200724
  Transmission Date: 20201103
  Serious: Yes (Hospitalization)
  Sender: FDA-Public Use
  Company Number: CA-ALLERGAN-1000084651

PATIENT
  Sex: Male
  Weight: 86.5 kg

DRUGS (5)
  1. HABITROL [Concomitant]
     Active Substance: NICOTINE
     Dosage: UNK
     Dates: start: 20151130
  2. NICODERM CQ [Concomitant]
     Active Substance: NICOTINE
     Dosage: UNK
     Dates: start: 20151130
  3. VITAMIN B12 [Concomitant]
     Active Substance: CYANOCOBALAMIN
     Dosage: UNK
     Dates: start: 20151202
  4. SAPHRIS [Suspect]
     Active Substance: ASENAPINE MALEATE
     Indication: PRODUCT USED FOR UNKNOWN INDICATION
     Dosage: 5 MG, UNK
     Dates: start: 20151207, end: 20151209
  5. REMICADE [Suspect]
     Active Substance: INFLIXIMAB
     Indication: PSORIASIS
     Dosage: 400 MG, 1 EVERY 8 WEEKS
     Route: 042
     Dates: start: 20150124

REACTIONS (2)
  - Suicidal ideation [Recovering/Resolving]
  - Psoriasis [Recovering/Resolving]

NARRATIVE: CASE EVENT DATE: 20151017
